FAERS Safety Report 20995757 (Version 3)
Quarter: 2022Q4

REPORT INFORMATION
  Report Type: Report from Study
  Country: CA (occurrence: CA)
  Receive Date: 20220623
  Receipt Date: 20221004
  Transmission Date: 20230112
  Serious: Yes (Hospitalization, Other)
  Sender: FDA-Public Use
  Company Number: CA-ABBVIE-22K-028-4442208-00

PATIENT
  Sex: Female

DRUGS (1)
  1. RINVOQ [Suspect]
     Active Substance: UPADACITINIB
     Indication: Rheumatoid arthritis
     Route: 048
     Dates: start: 20210913

REACTIONS (11)
  - Loss of consciousness [Unknown]
  - Facial bones fracture [Unknown]
  - Coma [Unknown]
  - Traumatic fracture [Unknown]
  - Fall [Unknown]
  - Memory impairment [Unknown]
  - Ankle fracture [Unknown]
  - Pain in extremity [Unknown]
  - Musculoskeletal stiffness [Unknown]
  - Joint lock [Unknown]
  - Fall [Unknown]

NARRATIVE: CASE EVENT DATE: 20220101
